FAERS Safety Report 6916832-1 (Version None)
Quarter: 2010Q3

REPORT INFORMATION
  Report Type: 
  Country: None (occurrence: None)
  Receive Date: 20100804
  Receipt Date: 20100726
  Transmission Date: 20110219
  Serious: Yes (Hospitalization)
  Sender: FDA-Public Use
  Company Number: AXC-2010-000186

PATIENT
  Age: 66 Year
  Sex: Male
  Weight: 54 kg

DRUGS (14)
  1. URSODEOXYCHOLIC ACID (URSODEOXYCHOLIC ACID) TABLET [Suspect]
     Indication: HEPATIC CIRRHOSIS
  2. CIMETIDINE [Suspect]
     Indication: PRODUCT USED FOR UNKNOWN INDICATION
  3. EVAMYL (LORMETAZEPAM) [Suspect]
     Indication: PRODUCT USED FOR UNKNOWN INDICATION
  4. ESTAZOLAM [Suspect]
     Indication: PRODUCT USED FOR UNKNOWN INDICATION
  5. HALOPERIDOL [Suspect]
     Indication: PRODUCT USED FOR UNKNOWN INDICATION
  6. OPALMON (LIMAPROST) [Suspect]
     Indication: PRODUCT USED FOR UNKNOWN INDICATION
  7. LASIX [Suspect]
     Indication: PRODUCT USED FOR UNKNOWN INDICATION
  8. ALDACTONE [Suspect]
     Indication: PRODUCT USED FOR UNKNOWN INDICATION
  9. LOXONIN /00890701/ (LOXOPROFEN) [Suspect]
     Indication: PRODUCT USED FOR UNKNOWN INDICATION
  10. VOLTAREN [Suspect]
     Indication: PRODUCT USED FOR UNKNOWN INDICATION
  11. VANCOMYCIN [Suspect]
     Indication: PRODUCT USED FOR UNKNOWN INDICATION
  12. IMIPENEM (IMIPENEM) [Suspect]
     Indication: PRODUCT USED FOR UNKNOWN INDICATION
  13. GLYCERIN /00200601/ (GLYCEROL) [Suspect]
     Indication: PRODUCT USED FOR UNKNOWN INDICATION
  14. LINEZOLID [Suspect]
     Indication: SEPSIS
     Dosage: 600 MG, QD,

REACTIONS (13)
  - ANAEMIA [None]
  - BETA HAEMOLYTIC STREPTOCOCCAL INFECTION [None]
  - BLOOD CULTURE POSITIVE [None]
  - DISSEMINATED INTRAVASCULAR COAGULATION [None]
  - ERYTHEMA MULTIFORME [None]
  - HAEMORRHAGE [None]
  - HEPATIC CIRRHOSIS [None]
  - PANCYTOPENIA [None]
  - PNEUMONIA [None]
  - PSEUDOMONAS INFECTION [None]
  - STAPHYLOCOCCAL SEPSIS [None]
  - SYSTEMIC CANDIDA [None]
  - TOXIC EPIDERMAL NECROLYSIS [None]
